FAERS Safety Report 8149498 (Version 10)
Quarter: 2013Q2

REPORT INFORMATION
  Report Type: Report from Study
  Country: NL (occurrence: NL)
  Receive Date: 20110922
  Receipt Date: 20130419
  Transmission Date: 20140414
  Serious: Yes (Hospitalization)
  Sender: FDA-Public Use
  Company Number: NL-ROCHE-802504

PATIENT
  Age: 47 Year
  Sex: Male
  Weight: 96 kg

DRUGS (4)
  1. VEMURAFENIB [Suspect]
     Indication: METASTATIC MALIGNANT MELANOMA
     Dosage: TEMPORARILY INTERRUPTED
     Route: 048
     Dates: start: 20110722, end: 20110913
  2. VEMURAFENIB [Suspect]
     Route: 048
  3. OXYCONTIN [Concomitant]
     Dosage: DAILY
     Route: 065
  4. PARACETAMOL [Concomitant]
     Dosage: DAILY
     Route: 065

REACTIONS (1)
  - Pericardial effusion [Recovered/Resolved]
